FAERS Safety Report 23684900 (Version 1)
Quarter: 2024Q1

REPORT INFORMATION
  Report Type: Spontaneous
  Country: US (occurrence: US)
  Receive Date: 20240328
  Receipt Date: 20240328
  Transmission Date: 20240410
  Serious: Yes (Other)
  Sender: FDA-Public Use
  Company Number: US-INCYTE CORPORATION-2024IN003159

PATIENT

DRUGS (2)
  1. JAKAFI [Suspect]
     Active Substance: RUXOLITINIB
     Route: 065
  2. MOMELOTINIB [Suspect]
     Active Substance: MOMELOTINIB
     Route: 065

REACTIONS (10)
  - Haemoglobin decreased [Unknown]
  - Heart rate increased [Unknown]
  - Abdominal pain [Unknown]
  - Splenomegaly [Unknown]
  - Pain [Unknown]
  - Decreased appetite [Unknown]
  - Drug withdrawal syndrome [Unknown]
  - Diarrhoea [Unknown]
  - Infection [Unknown]
  - Dizziness [Unknown]
